FAERS Safety Report 6553272-1 (Version None)
Quarter: 2010Q1

REPORT INFORMATION
  Report Type: 
  Country: None (occurrence: None)
  Receive Date: 20100127
  Receipt Date: 20090518
  Transmission Date: 20100710
  Serious: No
  Sender: FDA-Public Use
  Company Number: A0784867A

PATIENT
  Sex: Female

DRUGS (5)
  1. IMITREX [Suspect]
     Indication: MIGRAINE
     Route: 058
     Dates: start: 20070101
  2. IMITREX [Suspect]
  3. IMITREX [Suspect]
     Route: 048
  4. ALEVE (CAPLET) [Concomitant]
  5. VERAPAMIL [Concomitant]

REACTIONS (1)
  - HEADACHE [None]
